FAERS Safety Report 6782238-1 (Version None)
Quarter: 2010Q2

REPORT INFORMATION
  Report Type: 
  Country: None (occurrence: None)
  Receive Date: 20100621
  Receipt Date: 20100615
  Transmission Date: 20101027
  Serious: Yes (Other)
  Sender: FDA-Public Use
  Company Number: US-PFIZER INC-2010063455

PATIENT
  Sex: Female

DRUGS (1)
  1. DEPO-SUBQ PROVERA 104 [Suspect]
     Indication: ENDOMETRIOSIS
     Dosage: 104 MG, UNK

REACTIONS (6)
  - CHILLS [None]
  - HEADACHE [None]
  - METRORRHAGIA [None]
  - MOOD SWINGS [None]
  - NERVOUSNESS [None]
  - VAGINAL DISCHARGE [None]
